FAERS Safety Report 7862938-2 (Version None)
Quarter: 2011Q4

REPORT INFORMATION
  Report Type: 
  Country: None (occurrence: None)
  Receive Date: 20111027
  Receipt Date: 20101122
  Transmission Date: 20120403
  Serious: No
  Sender: FDA-Public Use
  Company Number: US-AMGEN-KDL403442

PATIENT
  Age: 59 Year
  Sex: Male
  Weight: 97.2 kg

DRUGS (7)
  1. ATENOLOL [Concomitant]
     Dosage: 50 MG, UNK
  2. ENBREL [Suspect]
     Indication: PSORIASIS
     Dosage: 50 MG, 2 TIMES/WK
     Route: 058
  3. CETIRIZINE HCL [Concomitant]
     Dosage: 5 MG, UNK
  4. OMEPRAZOLE [Concomitant]
     Dosage: 20 MG, UNK
  5. LISINOPRIL [Concomitant]
     Dosage: 10 MG, UNK
  6. MULTI-VITAMINS [Concomitant]
     Dosage: UNK UNK, UNK
  7. CLOBETASOL [Concomitant]
     Dosage: .05 %, UNK

REACTIONS (5)
  - PSORIASIS [None]
  - PRURITUS GENERALISED [None]
  - URTICARIA [None]
  - RASH MACULO-PAPULAR [None]
  - RASH PRURITIC [None]
